FAERS Safety Report 9378064 (Version 2)
Quarter: 2013Q3

REPORT INFORMATION
  Report Type: Spontaneous
  Country: US (occurrence: US)
  Receive Date: 20130701
  Receipt Date: 20130822
  Transmission Date: 20140515
  Serious: Yes (Hospitalization, Disabling)
  Sender: FDA-Public Use
  Company Number: US-GLAXOSMITHKLINE-A1028543A

PATIENT
  Age: 75 Year
  Sex: Female

DRUGS (8)
  1. ADVAIR [Suspect]
     Indication: CHRONIC OBSTRUCTIVE PULMONARY DISEASE
     Dosage: 1PUFF TWICE PER DAY
     Route: 055
     Dates: start: 2007
  2. TAZTIA [Concomitant]
  3. DIAVAN [Concomitant]
  4. NORVASC [Concomitant]
  5. BABY ASPIRIN [Concomitant]
  6. SOMA [Concomitant]
  7. XANAX [Concomitant]
  8. OXYGEN [Concomitant]

REACTIONS (8)
  - Respiratory arrest [Recovering/Resolving]
  - Mechanical ventilation [Recovering/Resolving]
  - Terminal state [Recovering/Resolving]
  - Dyspnoea [Recovering/Resolving]
  - Treatment noncompliance [Recovering/Resolving]
  - Suffocation feeling [Recovering/Resolving]
  - Amnesia [Recovering/Resolving]
  - Product quality issue [Unknown]
